FAERS Safety Report 5840315-3 (Version None)
Quarter: 2008Q3

REPORT INFORMATION
  Report Type: 
  Country: None (occurrence: None)
  Receive Date: 20080807
  Receipt Date: 20080807
  Transmission Date: 20090109
  Serious: Yes (Death)
  Sender: FDA-Public Use
  Company Number: None

PATIENT
  Sex: Male
  Weight: 77.1115 kg

DRUGS (1)
  1. CHANTIX [Suspect]
     Indication: SMOKING CESSATION THERAPY
     Dosage: 2X DAILY ORAL
     Route: 048
     Dates: start: 20080301, end: 20080501

REACTIONS (4)
  - COMPLETED SUICIDE [None]
  - HEAD INJURY [None]
  - INSOMNIA [None]
  - INTENTIONAL SELF-INJURY [None]
